FAERS Safety Report 6627523 (Version 30)
Quarter: 2014Q1

REPORT INFORMATION
  Report Type: Spontaneous
  Country: US (occurrence: US)
  Receive Date: 20080429
  Receipt Date: 20140225
  Transmission Date: 20141002
  Serious: Yes (Death, Hospitalization, Other)
  Sender: FDA-Public Use
  Company Number: PHEH2008US03999

PATIENT
  Age: 67 Year
  Sex: Male
  Weight: 93.6 kg

DRUGS (70)
  1. ZOMETA [Suspect]
     Indication: PLASMA CELL MYELOMA
     Dosage: 4 MG, UNK
     Route: 042
     Dates: start: 20030519, end: 20050321
  2. LORTAB [Concomitant]
  3. DOXYCYCLINE [Concomitant]
  4. PERIDEX [Concomitant]
  5. CLEOCIN [Concomitant]
  6. K-TAB [Concomitant]
  7. LASIX [Concomitant]
     Dosage: 20 MG, QD
     Route: 048
  8. BEXTRA [Concomitant]
  9. INVANZ [Concomitant]
     Dosage: 1000 MG, UNK
     Route: 042
  10. MOBIC [Concomitant]
     Dosage: 7.5 MG, BID
     Route: 048
  11. TRENTAL ^ALBERT-ROUSSEL^ [Concomitant]
     Indication: TRISMUS
  12. PREDNISONE [Concomitant]
     Dosage: 5 MG, UNK
  13. DIAMOX                                  /CAN/ [Concomitant]
     Dosage: 500 MG, UNK
  14. BIAXIN [Concomitant]
     Dosage: 500 MG, UNK
  15. FLOXIN ^DAIICHI^ [Concomitant]
     Dosage: 300 MG, UNK
  16. Z-PAK [Concomitant]
  17. KCL [Concomitant]
  18. ZOLOFT (SERTRALINE HYDROCHLORIDE) [Concomitant]
     Dosage: 50 MG, DAILY
     Route: 048
  19. ATENOLOL [Concomitant]
     Route: 048
  20. NEXIUM [Concomitant]
  21. ATIVAN [Concomitant]
  22. MVI [Concomitant]
  23. HEPARIN LOCK FLUSH [Concomitant]
  24. REGLAN                                  /USA/ [Concomitant]
  25. PROTONIX ^PHARMACIA^ [Concomitant]
  26. SENNA [Concomitant]
  27. HYDROMORPHONE [Concomitant]
  28. FOLIC ACID [Concomitant]
  29. TRENTAL ^ALBERT-ROUSSEL^ [Concomitant]
  30. NYSTATIN [Concomitant]
  31. METOCLOPRAMIDE [Concomitant]
     Dosage: 10 MG/2 ML
     Route: 065
  32. COUMADIN ^BOOTS^ [Concomitant]
  33. LIPITOR                                 /NET/ [Concomitant]
     Dosage: 40 MG, QD
     Route: 048
  34. DEMEROL [Concomitant]
  35. VERSED [Concomitant]
  36. PLENDIL [Concomitant]
     Dosage: 5 MG, QD
     Route: 048
  37. PRILOSEC [Concomitant]
     Dosage: 20 MG, QD
     Route: 048
  38. NORVASC                                 /DEN/ [Concomitant]
  39. ASA [Concomitant]
  40. ZOLOFT (SERTRALINE HYDROCHLORIDE) [Concomitant]
  41. ASPIRIN ^BAYER^ [Concomitant]
  42. HYDROCODONE W/ACETAMINOPHEN [Concomitant]
     Dosage: 5 MG, PRN
     Route: 048
  43. TRIAMCINOLONE [Concomitant]
     Dosage: 0.1 %, UNK
     Route: 061
  44. FLECTOR [Concomitant]
     Dosage: 1.3 %, QD
     Route: 062
  45. OMEPRAZOLE [Concomitant]
     Dosage: 20 MG, BID
     Route: 048
  46. SERTRALINE [Concomitant]
     Dosage: 100 MG, UNK
     Route: 048
  47. MELOXICAM [Concomitant]
     Dosage: 15 MG, UNK
     Route: 048
  48. LISINOPRIL [Concomitant]
     Dosage: 2.5 MG, QD
     Route: 048
  49. CHLORHEXIDINE DENTAL ^ACO^ [Concomitant]
     Dosage: 0.12 %, TID
     Route: 049
  50. FAMOTIDINE [Concomitant]
     Dosage: 20 MG, QD
     Route: 048
  51. TEMAZEPAM [Concomitant]
     Dosage: 30 MG, BID
     Route: 048
  52. SULFAMETHOXAZOLE [Concomitant]
     Route: 048
  53. PREVACID [Concomitant]
     Dosage: 30 MG, QD
     Route: 048
  54. ZELNORM                                 /USA/ [Concomitant]
     Dosage: 6 MG, UNK
     Route: 048
  55. KETOCONAZOLE [Concomitant]
     Dosage: 200 MG, UNK
     Route: 048
  56. GENTAMICIN [Concomitant]
     Dosage: 0.1 %, UNK
     Route: 061
  57. PENTOXIFYLLINE [Concomitant]
     Dosage: 400 MG, UNK
     Route: 048
  58. ZYRTEC [Concomitant]
     Dosage: 10 MG, UNK
     Route: 048
  59. CEFACLOR [Concomitant]
     Dosage: 500 MG, UNK
     Route: 048
  60. DOXAZOSIN [Concomitant]
     Dosage: 4 MG, UNK
     Route: 048
  61. NABUMETONE [Concomitant]
     Dosage: 750 MG, UNK
     Route: 048
  62. KEFLEX                                  /UNK/ [Concomitant]
  63. PENICILLIN ^GRUNENTHAL^ [Concomitant]
  64. ZELNORM                                 /CAN/ [Concomitant]
  65. REGLAN                                  /USA/ [Concomitant]
  66. VITAMIN C [Concomitant]
  67. COLACE [Concomitant]
  68. CARDURA [Concomitant]
  69. DILAUDID [Concomitant]
  70. MAGIC MOUTHWASH [Concomitant]

REACTIONS (149)
  - Death [Fatal]
  - Wound infection staphylococcal [Unknown]
  - Osteonecrosis of jaw [Unknown]
  - Pain [Unknown]
  - Infection [Unknown]
  - Scar [Unknown]
  - Injury [Unknown]
  - Emotional distress [Unknown]
  - Anxiety [Unknown]
  - Physical disability [Unknown]
  - Jaw disorder [Unknown]
  - Tooth abscess [Unknown]
  - Trismus [Unknown]
  - Osteoradionecrosis [Unknown]
  - Bone disorder [Unknown]
  - Toothache [Unknown]
  - Fistula discharge [Unknown]
  - Pain in jaw [Unknown]
  - Bone swelling [Unknown]
  - Tongue injury [Unknown]
  - Dental caries [Unknown]
  - Induration [Unknown]
  - Muscle tightness [Unknown]
  - Parotitis [Unknown]
  - Plasmacytoma [Unknown]
  - Pancreatitis [Unknown]
  - Blood bilirubin increased [Unknown]
  - Lipase increased [Unknown]
  - Haemangioma [Unknown]
  - Mass [Unknown]
  - Renal cyst [Unknown]
  - Intervertebral disc degeneration [Unknown]
  - Sinusitis [Unknown]
  - Headache [Unknown]
  - Spinal osteoarthritis [Unknown]
  - Mouth ulceration [Unknown]
  - Bone fragmentation [Unknown]
  - Purulent discharge [Unknown]
  - Anaemia [Unknown]
  - Exostosis [Recovered/Resolved]
  - Cellulitis [Unknown]
  - Hepatomegaly [Unknown]
  - Cholelithiasis [Unknown]
  - Atelectasis [Unknown]
  - Abdominal pain upper [Unknown]
  - Chest pain [Unknown]
  - Bone marrow reticulin fibrosis [Unknown]
  - Marrow hyperplasia [Unknown]
  - Cardiac failure congestive [Unknown]
  - Dyspnoea [Unknown]
  - Oxygen saturation decreased [Unknown]
  - Somnolence [Unknown]
  - Nausea [Unknown]
  - Hiccups [Unknown]
  - Bile duct stone [Unknown]
  - Heart valve incompetence [Unknown]
  - Erosive oesophagitis [Unknown]
  - Oesophageal ulcer [Unknown]
  - Inflammation [Unknown]
  - Vasculitis [Unknown]
  - Blood cholesterol increased [Unknown]
  - Fibrosis [Unknown]
  - Hypoxia [Unknown]
  - Haemorrhoids [Unknown]
  - Prostatic specific antigen increased [Unknown]
  - Paraesthesia oral [Unknown]
  - Tooth erosion [Unknown]
  - Necrosis [Unknown]
  - Cervical myelopathy [Unknown]
  - Hepatic enzyme increased [Unknown]
  - Hypoaesthesia oral [Unknown]
  - Hypoaesthesia [Unknown]
  - Osteoarthritis [Unknown]
  - Rotator cuff syndrome [Unknown]
  - Loose body in joint [Unknown]
  - Sinus bradycardia [Unknown]
  - Aphagia [Unknown]
  - Abdominal pain [Unknown]
  - Administration site infection [Unknown]
  - Arteriosclerosis [Unknown]
  - Cardiomegaly [Unknown]
  - Supraventricular extrasystoles [Unknown]
  - Cataract [Unknown]
  - Sinus tachycardia [Unknown]
  - Mental status changes [Unknown]
  - Jaundice cholestatic [Unknown]
  - Granuloma [Unknown]
  - Cartilage atrophy [Unknown]
  - Gastrooesophageal reflux disease [Unknown]
  - Chronic sinusitis [Unknown]
  - Benign bone neoplasm [Unknown]
  - Neuropathy peripheral [Unknown]
  - Hypokalaemia [Unknown]
  - Hyperglycaemia [Unknown]
  - Angiofibroma [Unknown]
  - Fat necrosis [Unknown]
  - Scleroderma [Unknown]
  - Spinal disorder [Unknown]
  - Back pain [Unknown]
  - Lichenoid keratosis [Unknown]
  - Skin ulcer [Unknown]
  - Dermatitis [Unknown]
  - Skin fibrosis [Unknown]
  - Respiratory distress [Unknown]
  - Convulsion [Unknown]
  - Cerebrovascular accident [Unknown]
  - Urinary tract obstruction [Unknown]
  - Urinary retention [Unknown]
  - Respiratory failure [Unknown]
  - Aortic valve sclerosis [Unknown]
  - Bone cancer [Unknown]
  - Second primary malignancy [Unknown]
  - Lung infiltration [Unknown]
  - Cerebellar infarction [Unknown]
  - Respiratory arrest [Unknown]
  - Tachycardia [Unknown]
  - Loose tooth [Unknown]
  - Osteosclerosis [Unknown]
  - Jaw fracture [Unknown]
  - Local swelling [Unknown]
  - Swelling face [Unknown]
  - Dysphagia [Unknown]
  - Dehydration [Unknown]
  - Spinal column stenosis [Unknown]
  - Mucosal inflammation [Unknown]
  - Breast cyst [Unknown]
  - Palpitations [Unknown]
  - Acute prerenal failure [Unknown]
  - Oedema peripheral [Unknown]
  - Bone lesion [Unknown]
  - Gallbladder disorder [Unknown]
  - Telangiectasia [Unknown]
  - Sensitivity of teeth [Unknown]
  - Intervertebral disc protrusion [Unknown]
  - Vertebral foraminal stenosis [Unknown]
  - Epicondylitis [Unknown]
  - Ear pain [Unknown]
  - Asthenia [Unknown]
  - Rash [Unknown]
  - Arthralgia [Unknown]
  - Oropharyngeal pain [Unknown]
  - Sialoadenitis [Unknown]
  - Epistaxis [Unknown]
  - Mastication disorder [Unknown]
  - Epiglottic oedema [Unknown]
  - Cerumen impaction [Unknown]
  - Erythema [Unknown]
  - Dry mouth [Unknown]
  - Tooth fracture [Unknown]
